FAERS Safety Report 25364763 (Version 2)
Quarter: 2025Q2

REPORT INFORMATION
  Report Type: Report from Study
  Country: KR (occurrence: KR)
  Receive Date: 20250527
  Receipt Date: 20250604
  Transmission Date: 20250717
  Serious: Yes (Death, Hospitalization, Other)
  Sender: ELI LILLY AND COMPANY
  Company Number: KR-ELI_LILLY_AND_COMPANY-KR202505008358

PATIENT
  Age: 57 Year
  Sex: Male

DRUGS (20)
  1. CYRAMZA [Suspect]
     Active Substance: RAMUCIRUMAB
     Indication: Lung neoplasm malignant
     Route: 042
     Dates: start: 20250122
  2. CYRAMZA [Suspect]
     Active Substance: RAMUCIRUMAB
     Indication: Gastrointestinal disorder
     Dosage: 500 MG, DAILY (1.6 PER DAY)
     Route: 042
     Dates: start: 20250430
  3. DOCETAXEL [Suspect]
     Active Substance: DOCETAXEL
     Indication: Lung neoplasm malignant
     Route: 065
  4. DOCETAXEL [Suspect]
     Active Substance: DOCETAXEL
     Indication: Gastrointestinal disorder
  5. MEGESTROL ACETATE [Concomitant]
     Active Substance: MEGESTROL ACETATE
     Indication: Product used for unknown indication
     Dates: start: 20250429
  6. CETAMADOL [Concomitant]
     Indication: Product used for unknown indication
     Dates: start: 20250429
  7. FENTADUR [Concomitant]
     Indication: Product used for unknown indication
  8. MACPERAN [METOCLOPRAMIDE] [Concomitant]
     Indication: Product used for unknown indication
     Dates: start: 20250430
  9. MACPERAN [METOCLOPRAMIDE] [Concomitant]
     Dates: start: 20250501
  10. DEXAMETHASONE [Concomitant]
     Active Substance: DEXAMETHASONE
     Indication: Product used for unknown indication
     Dates: start: 20250430
  11. DEXAMETHASONE [Concomitant]
     Active Substance: DEXAMETHASONE
     Dates: start: 20250501
  12. BENOCAINE [Concomitant]
     Indication: Product used for unknown indication
     Dates: start: 20250430
  13. ABSTRAL [Concomitant]
     Active Substance: FENTANYL CITRATE
     Indication: Product used for unknown indication
     Dates: start: 20250430
  14. ABSTRAL [Concomitant]
     Active Substance: FENTANYL CITRATE
     Dates: start: 20250501
  15. ALMAGEL-F [Concomitant]
     Indication: Product used for unknown indication
     Dates: start: 20250430
  16. DONG A GASTER [Concomitant]
     Indication: Product used for unknown indication
     Dates: start: 20250501
  17. GASTER [Concomitant]
     Active Substance: FAMOTIDINE
     Indication: Product used for unknown indication
     Dates: start: 20250429
  18. GASTER [Concomitant]
     Active Substance: FAMOTIDINE
     Dates: start: 20250430
  19. XGEVA [Concomitant]
     Active Substance: DENOSUMAB
     Indication: Product used for unknown indication
     Dates: start: 20250430
  20. PENIRAMIN [Concomitant]
     Indication: Product used for unknown indication
     Dates: start: 20250430

REACTIONS (9)
  - Sepsis [Fatal]
  - Renal impairment [Unknown]
  - Cardiac dysfunction [Unknown]
  - Generalised oedema [Unknown]
  - Renal impairment [Unknown]
  - General physical health deterioration [Unknown]
  - Discomfort [Unknown]
  - Decreased appetite [Unknown]
  - Abdominal pain [Unknown]

NARRATIVE: CASE EVENT DATE: 20250501
